FAERS Safety Report 12659605 (Version 1)
Quarter: 2016Q3

REPORT INFORMATION
  Report Type: Spontaneous
  Country: US (occurrence: US)
  Receive Date: 20160817
  Receipt Date: 20160817
  Transmission Date: 20161109
  Serious: No
  Sender: FDA-Public Use
  Company Number: US-009507513-1608USA003943

PATIENT
  Sex: Male

DRUGS (2)
  1. REBETOL [Concomitant]
     Active Substance: RIBAVIRIN
  2. ZEPATIER [Suspect]
     Active Substance: ELBASVIR\GRAZOPREVIR
     Indication: CHRONIC HEPATITIS C
     Dosage: UNKNOWN BY REPORTER
     Route: 048

REACTIONS (1)
  - Rash [Unknown]
